FAERS Safety Report 9698096 (Version 1)
Quarter: 2013Q4

REPORT INFORMATION
  Report Type: Spontaneous
  Country: GB (occurrence: None)
  Receive Date: 20131113
  Receipt Date: 20131113
  Transmission Date: 20140711
  Serious: Yes (Death, Other)
  Sender: FDA-Public Use
  Company Number: 2013035373

PATIENT
  Age: 91 Year
  Sex: Female

DRUGS (10)
  1. BERIPLEX [Suspect]
     Indication: SUBDURAL HAEMATOMA
     Dosage: 1375 IU TOTAL?INTRAVENOUS (NOT OTHERWISE SPECIFIED)
     Route: 042
     Dates: start: 20130311
  2. VITAMIN K [Suspect]
     Dosage: 5 MG TOTAL?INTRAVENOUS (NOT OTHERWISE SPECIFIED)
     Route: 042
     Dates: start: 20130320
  3. BISOPROLOL (BISOPROLOL) [Concomitant]
  4. CITALOPRAM (CITALOPRAM) [Concomitant]
  5. DIGOXIN (DIGOXIN) [Concomitant]
  6. FUROSEMIDE (FUROSEMIDE) [Concomitant]
  7. LISINOPRIL (LISINOPRIL) [Concomitant]
  8. IRBESARTAN (IRBESARTAN) [Concomitant]
  9. PARACETAMOL (PARACETAMOL) [Concomitant]
  10. METOCLOPRAMIDE (METOCLOPRAMIDE) [Concomitant]

REACTIONS (2)
  - Drug ineffective [None]
  - International normalised ratio increased [None]
